FAERS Safety Report 25305350 (Version 1)
Quarter: 2025Q2

REPORT INFORMATION
  Report Type: Spontaneous
  Country: US (occurrence: None)
  Receive Date: 20250513
  Receipt Date: 20250513
  Transmission Date: 20250716
  Serious: Yes (Hospitalization)
  Sender: FDA-CTU
  Company Number: None

PATIENT
  Age: 74 Year
  Sex: Male
  Weight: 74 kg

DRUGS (1)
  1. LISINOPRIL [Suspect]
     Active Substance: LISINOPRIL
     Indication: Hypertension
     Dosage: FREQUENCY : DAILY;?
     Route: 048
     Dates: start: 20201015

REACTIONS (8)
  - Chronic obstructive pulmonary disease [None]
  - Acute respiratory failure [None]
  - Heart rate increased [None]
  - Blood culture positive [None]
  - Lactobacillus test positive [None]
  - Atrial fibrillation [None]
  - Acute kidney injury [None]
  - Renal mass [None]

NARRATIVE: CASE EVENT DATE: 20240604
